FAERS Safety Report 12278687 (Version 3)
Quarter: 2016Q3

REPORT INFORMATION
  Report Type: Spontaneous
  Country: MX (occurrence: MX)
  Receive Date: 20160418
  Receipt Date: 20160801
  Transmission Date: 20161109
  Serious: Yes (Other)
  Sender: FDA-Public Use
  Company Number: MX-ABBVIE-16P-107-1604089-00

PATIENT
  Age: 79 Year
  Sex: Male
  Weight: 81.3 kg

DRUGS (1)
  1. VIEKIRA PAK [Suspect]
     Active Substance: DASABUVIR\OMBITASVIR\PARITAPREVIR\RITONAVIR
     Indication: HEPATITIS C
     Dosage: 2 TABS IN AM, DASABUVIR 1 TAB IN AM AND 1 IN PM
     Route: 048
     Dates: start: 20160112, end: 20160405

REACTIONS (2)
  - Encephalopathy [Not Recovered/Not Resolved]
  - Hyperammonaemia [Recovered/Resolved]

NARRATIVE: CASE EVENT DATE: 20160406
